FAERS Safety Report 13640988 (Version 1)
Quarter: 2017Q2

REPORT INFORMATION
  Report Type: Report from Study
  Country: DE (occurrence: DE)
  Receive Date: 20170612
  Receipt Date: 20170612
  Transmission Date: 20170830
  Serious: Yes (Other)
  Sender: FDA-Public Use
  Company Number: DE-CIPLA LTD.-2017DE10221

PATIENT

DRUGS (3)
  1. MIDAZOLAM [Suspect]
     Active Substance: MIDAZOLAM HYDROCHLORIDE
     Dosage: 30 ?G, MICRODOSE IN 100 ML TAP WATER ON DAYS 1, 6 AND 12
     Route: 048
  2. TENOFOVIR [Suspect]
     Active Substance: TENOFOVIR
     Dosage: 300 MG, QD, ON TRIAL DAYS 2 TO 12
     Route: 048
  3. MYRCLUDEX B [Suspect]
     Active Substance: MYRCLUDEX B
     Dosage: 10 MG, QD, 2 CONSECUTIVE INJECTIONS WITH 5 MG EACH, ON TRIAL DAYS 7 TO 12
     Route: 058

REACTIONS (2)
  - Amylase abnormal [Unknown]
  - Lipase increased [Unknown]
